FAERS Safety Report 9128959 (Version 2)
Quarter: 2013Q2

REPORT INFORMATION
  Report Type: Spontaneous
  Country: DZ (occurrence: DZ)
  Receive Date: 20130228
  Receipt Date: 20130404
  Transmission Date: 20140414
  Serious: Yes (Other)
  Sender: FDA-Public Use
  Company Number: DZ-PFIZER INC-2013071396

PATIENT
  Age: 59 Year
  Sex: Female

DRUGS (6)
  1. LYRICA [Suspect]
     Indication: NEURALGIA
     Dosage: 50 MG, 2X/DAY
     Dates: start: 20130203, end: 20130206
  2. LYRICA [Suspect]
     Indication: INTERVERTEBRAL DISC PROTRUSION
  3. FELDENE [Concomitant]
     Dosage: 20 MG, 1X/DAY
  4. DOLIPRANE [Concomitant]
     Dosage: 500 MG, 3X/DAY
  5. RANITIDINE [Concomitant]
     Dosage: UNK
  6. SEGLOR [Concomitant]

REACTIONS (2)
  - Asthenia [Recovered/Resolved]
  - Palpitations [Recovered/Resolved]
